FAERS Safety Report 10156742 (Version 1)
Quarter: 2014Q2

REPORT INFORMATION
  Report Type: Report from Study
  Country: US (occurrence: US)
  Receive Date: 20140507
  Receipt Date: 20140507
  Transmission Date: 20141212
  Serious: Yes (Hospitalization, Other)
  Sender: FDA-Public Use
  Company Number: US-ROCHE-1394269

PATIENT
  Age: 60 Year
  Sex: Female
  Weight: 69.01 kg

DRUGS (6)
  1. HERCEPTIN [Suspect]
     Indication: BREAST CANCER
     Route: 050
     Dates: start: 201311
  2. XELODA [Suspect]
     Indication: BREAST CANCER
     Dosage: 3 TABLETS EVERY MORNING AND 2 TABLETS EVERY EVENING
     Route: 048
     Dates: start: 20140324
  3. TYKERB [Concomitant]
     Indication: BREAST CANCER
     Route: 048
     Dates: start: 20140324
  4. SIMVASTATIN [Concomitant]
     Route: 048
  5. ONDANSETRON [Concomitant]
     Indication: NAUSEA
     Route: 048
     Dates: start: 201311
  6. DEXILANT [Concomitant]
     Indication: GASTROOESOPHAGEAL REFLUX DISEASE
     Route: 048

REACTIONS (4)
  - Convulsion [Unknown]
  - Dysgeusia [Not Recovered/Not Resolved]
  - Asthenia [Not Recovered/Not Resolved]
  - Hypotension [Not Recovered/Not Resolved]
